FAERS Safety Report 15295615 (Version 3)
Quarter: 2018Q3

REPORT INFORMATION
  Report Type: Spontaneous
  Country: US (occurrence: US)
  Receive Date: 20180820
  Receipt Date: 20180917
  Transmission Date: 20181010
  Serious: No
  Sender: FDA-Public Use
  Company Number: US-SA-2018SA200784

PATIENT
  Sex: Female

DRUGS (1)
  1. AUBAGIO [Suspect]
     Active Substance: TERIFLUNOMIDE
     Indication: MULTIPLE SCLEROSIS
     Dosage: 14 MG
     Route: 048
     Dates: start: 201802, end: 201807

REACTIONS (4)
  - Thyroiditis [Recovering/Resolving]
  - Drug ineffective [Unknown]
  - Tachycardia [Recovering/Resolving]
  - Unevaluable event [Unknown]
